FAERS Safety Report 17485486 (Version 10)
Quarter: 2021Q2

REPORT INFORMATION
  Report Type: Report from Study
  Country: None (occurrence: NL)
  Receive Date: 20200302
  Receipt Date: 20210405
  Transmission Date: 20210716
  Serious: Yes (Hospitalization, Other)
  Sender: FDA-Public Use
  Company Number: NL-ABBVIE-20K-114-3272122-00

PATIENT
  Age: 62 Year
  Sex: Female

DRUGS (6)
  1. TRAMADOL. [Concomitant]
     Active Substance: TRAMADOL
     Indication: PRODUCT USED FOR UNKNOWN INDICATION
  2. DUODOPA [Suspect]
     Active Substance: CARBIDOPA\LEVODOPA
     Dosage: MD: 9.0 ML, CD: 1.8 ML/H, ED: 2.0 ML
     Route: 050
  3. DUODOPA [Suspect]
     Active Substance: CARBIDOPA\LEVODOPA
     Indication: PARKINSON^S DISEASE
     Dosage: MD 9.0 CD 1.4 ED 2.0
     Route: 050
     Dates: start: 20200128, end: 2020
  4. DUODOPA [Suspect]
     Active Substance: CARBIDOPA\LEVODOPA
     Dosage: MD: 6.0, CD: 1.4, ED: 1.0
     Route: 050
     Dates: start: 2020
  5. DUODOPA [Suspect]
     Active Substance: CARBIDOPA\LEVODOPA
     Dosage: MD: 9.0 ML, CD: 2.0 ML/H, ED: 2.0 ML
     Route: 050
  6. MADOPAR [Concomitant]
     Active Substance: BENSERAZIDE HYDROCHLORIDE\LEVODOPA
     Indication: PARKINSON^S DISEASE
     Dosage: MADOPAR DISPER, EVERY NIGHT

REACTIONS (44)
  - Urinary tract infection [Recovered/Resolved]
  - Foaming at mouth [Not Recovered/Not Resolved]
  - Hyperkinesia [Not Recovered/Not Resolved]
  - Hypotension [Not Recovered/Not Resolved]
  - Seizure [Not Recovered/Not Resolved]
  - Cystitis [Not Recovered/Not Resolved]
  - Hyperventilation [Not Recovered/Not Resolved]
  - Pain [Not Recovered/Not Resolved]
  - Fear of disease [Not Recovered/Not Resolved]
  - Fall [Not Recovered/Not Resolved]
  - Stoma site pain [Not Recovered/Not Resolved]
  - Depression [Not Recovered/Not Resolved]
  - Personality disorder [Not Recovered/Not Resolved]
  - Renal neoplasm [Not Recovered/Not Resolved]
  - Stress [Not Recovered/Not Resolved]
  - Panic attack [Not Recovered/Not Resolved]
  - Muscle rigidity [Not Recovered/Not Resolved]
  - Mobility decreased [Not Recovered/Not Resolved]
  - Respiration abnormal [Not Recovered/Not Resolved]
  - Dyskinesia [Recovered/Resolved]
  - Terminal insomnia [Not Recovered/Not Resolved]
  - Medical device pain [Unknown]
  - Stoma site irritation [Unknown]
  - Device issue [Unknown]
  - Nervousness [Not Recovered/Not Resolved]
  - Back pain [Unknown]
  - On and off phenomenon [Not Recovered/Not Resolved]
  - Mental disorder [Not Recovered/Not Resolved]
  - Increased appetite [Not Recovered/Not Resolved]
  - Diarrhoea [Recovered/Resolved]
  - Hospitalisation [Not Recovered/Not Resolved]
  - Dental discomfort [Not Recovered/Not Resolved]
  - Dysgeusia [Not Recovered/Not Resolved]
  - Musculoskeletal stiffness [Not Recovered/Not Resolved]
  - General physical health deterioration [Unknown]
  - Post procedural complication [Unknown]
  - Anxiety [Not Recovered/Not Resolved]
  - Anxiety [Not Recovered/Not Resolved]
  - Adrenal neoplasm [Unknown]
  - General physical condition abnormal [Not Recovered/Not Resolved]
  - Palpitations [Not Recovered/Not Resolved]
  - Abdominal pain [Recovering/Resolving]
  - Bradykinesia [Not Recovered/Not Resolved]
  - Compulsions [Not Recovered/Not Resolved]

NARRATIVE: CASE EVENT DATE: 2020
